FAERS Safety Report 17437043 (Version 1)
Quarter: 2020Q1

REPORT INFORMATION
  Report Type: Spontaneous
  Country: US (occurrence: US)
  Receive Date: 20200219
  Receipt Date: 20200219
  Transmission Date: 20200409
  Serious: No
  Sender: FDA-Public Use
  Company Number: US-JNJFOC-20200201409

PATIENT
  Sex: Female
  Weight: 59.02 kg

DRUGS (4)
  1. TYLENOL [Suspect]
     Active Substance: ACETAMINOPHEN
     Indication: PYREXIA
     Route: 048
  2. TYLENOL COLD + FLU SEVERE WARMING [Concomitant]
     Indication: PYREXIA
  3. TYLENOL [Suspect]
     Active Substance: ACETAMINOPHEN
     Indication: MUCOSAL DISORDER
  4. TYLENOL COLD + FLU SEVERE WARMING [Concomitant]
     Indication: MUCOSAL DISORDER

REACTIONS (3)
  - Incorrect dose administered [Unknown]
  - Product administration error [Unknown]
  - Product use in unapproved indication [Unknown]
